FAERS Safety Report 20328572 (Version 1)
Quarter: 2022Q1

REPORT INFORMATION
  Report Type: Spontaneous
  Country: US (occurrence: None)
  Receive Date: 20220112
  Receipt Date: 20220112
  Transmission Date: 20220424
  Serious: Yes (Death)
  Sender: FDA-Public Use
  Company Number: None

PATIENT
  Sex: Female

DRUGS (3)
  1. CAPECITABINE [Suspect]
     Active Substance: CAPECITABINE
     Indication: Breast cancer female
     Dosage: TAKE 3 TABLETS (1,500 MG TOTAL) BY MOUTH TWO TIMES A DAY ON DAYS 1 - 14, FOLLOWED BY 7 DAYS OFF,OF?E
     Route: 048
     Dates: start: 20220111
  2. IBRANCE [Concomitant]
     Active Substance: PALBOCICLIB
  3. PIQRAY [Concomitant]
     Active Substance: ALPELISIB

REACTIONS (1)
  - Death [None]
